FAERS Safety Report 10340298 (Version 1)
Quarter: 2014Q3

REPORT INFORMATION
  Report Type: Spontaneous
  Country: US (occurrence: US)
  Receive Date: 20140724
  Receipt Date: 20140724
  Transmission Date: 20150326
  Serious: Yes (Death)
  Sender: FDA-Public Use
  Company Number: US-FRI-1000069094

PATIENT
  Age: 35 Year
  Sex: Male
  Weight: 136.78 kg

DRUGS (6)
  1. VALIUM [Concomitant]
     Active Substance: DIAZEPAM
     Dosage: 10MG
  2. VIIBRYD [Suspect]
     Active Substance: VILAZODONE HYDROCHLORIDE
     Indication: DEPRESSION
     Dosage: 10MG
     Route: 048
     Dates: start: 20140516, end: 20140605
  3. QUETIAPINE [Concomitant]
     Active Substance: QUETIAPINE
     Dosage: 400MG
  4. OXCARBAZEPINE. [Concomitant]
     Active Substance: OXCARBAZEPINE
     Dosage: 150MG
  5. SERTRALINE [Concomitant]
     Active Substance: SERTRALINE HYDROCHLORIDE
     Dosage: 25MG
  6. VYVANSE [Concomitant]
     Active Substance: LISDEXAMFETAMINE DIMESYLATE
     Dosage: 30MG

REACTIONS (3)
  - Diarrhoea [Unknown]
  - Completed suicide [Fatal]
  - Irritability [Unknown]

NARRATIVE: CASE EVENT DATE: 201405
